FAERS Safety Report 6383649-9 (Version None)
Quarter: 2009Q3

REPORT INFORMATION
  Report Type: 
  Country: None (occurrence: None)
  Receive Date: 20090928
  Receipt Date: 20090928
  Transmission Date: 20100115
  Serious: No
  Sender: FDA-Public Use
  Company Number: None

PATIENT
  Age: 41 Year
  Sex: Female
  Weight: 70.3075 kg

DRUGS (1)
  1. LITHIUM CARBONATE [Suspect]
     Indication: BIPOLAR DISORDER
     Dosage: 1200 MG. 2 DAYS/ 900 MG. 1 DAY EVERYDAY PO
     Route: 048
     Dates: start: 19920101, end: 20090928

REACTIONS (1)
  - ABDOMINAL DISTENSION [None]
